FAERS Safety Report 8497959 (Version 2)
Quarter: 2013Q3

REPORT INFORMATION
  Report Type: Spontaneous
  Country: US (occurrence: US)
  Receive Date: 20120406
  Receipt Date: 20130815
  Transmission Date: 20140515
  Serious: Yes (Other)
  Sender: FDA-Public Use
  Company Number: CHPA2012US005711

PATIENT
  Age: 46 Year
  Sex: Female

DRUGS (1)
  1. EXCEDRIN EXTRA STRENGTH [Suspect]
     Dosage: 2 DF, BID OR TID, PRN
     Route: 048
     Dates: start: 1983, end: 1995

REACTIONS (5)
  - Nephrolithiasis [Not Recovered/Not Resolved]
  - Drug abuse [Recovered/Resolved]
  - Soft tissue injury [Unknown]
  - Feeling cold [Not Recovered/Not Resolved]
  - Inappropriate schedule of drug administration [Unknown]
